FAERS Safety Report 13515465 (Version 3)
Quarter: 2017Q2

REPORT INFORMATION
  Report Type: Spontaneous
  Country: US (occurrence: US)
  Receive Date: 20170504
  Receipt Date: 20170618
  Transmission Date: 20170830
  Serious: No
  Sender: FDA-Public Use
  Company Number: US-SHIRE-US201710016

PATIENT
  Age: 64 Year
  Sex: Female
  Weight: 55.78 kg

DRUGS (23)
  1. DEPAKOTE [Concomitant]
     Active Substance: DIVALPROEX SODIUM
     Indication: MIGRAINE
     Dosage: 125 MG, 1X/DAY:QD
     Route: 048
     Dates: start: 2015
  2. LORATADINE. [Concomitant]
     Active Substance: LORATADINE
     Indication: SEASONAL ALLERGY
     Dosage: 10 MG, 1X/DAY:QD
     Route: 048
     Dates: start: 2016
  3. VITAMIN D                          /00107901/ [Concomitant]
     Active Substance: ERGOCALCIFEROL
     Indication: SUPPLEMENTATION THERAPY
     Dosage: 50000 IU, OTHER (BI-WEEKLY)
     Route: 048
     Dates: start: 2008
  4. MIRALAX [Concomitant]
     Active Substance: POLYETHYLENE GLYCOL 3350
     Indication: CONSTIPATION
     Dosage: 4 TBS, 3X/DAY:TID
     Route: 065
  5. ASPIRIN                            /00002701/ [Concomitant]
     Active Substance: ASPIRIN
     Indication: PROPHYLAXIS
     Dosage: 81 MG, 1X/DAY:QD
     Route: 048
     Dates: start: 2014
  6. TOPIRAMATE. [Concomitant]
     Active Substance: TOPIRAMATE
     Indication: MIGRAINE
     Dosage: 50 MG, 2X/DAY:BID
     Route: 048
     Dates: start: 2012
  7. AMITRIPTYLINE [Concomitant]
     Active Substance: AMITRIPTYLINE
     Indication: SLEEP DISORDER
     Dosage: 50 MG, 1X/DAY:QD (1-2 TAB BEDTIME)
     Route: 065
  8. NASONEX [Concomitant]
     Active Substance: MOMETASONE FUROATE
     Indication: SEASONAL ALLERGY
     Dosage: 50 ?G, 2X/DAY:BID
     Route: 045
     Dates: start: 2016
  9. IRON [Concomitant]
     Active Substance: IRON
     Indication: ANAEMIA
     Dosage: 325 MG, 1X/DAY:QD
     Route: 048
     Dates: start: 2014
  10. DHEA AFL [Concomitant]
     Indication: PAIN MANAGEMENT
     Dosage: 125 MG, 1X/DAY:QD
     Route: 048
     Dates: start: 2015
  11. OMEPRAZOLE. [Concomitant]
     Active Substance: OMEPRAZOLE
     Indication: GASTROOESOPHAGEAL REFLUX DISEASE
     Dosage: 40 MG, 1X/DAY:QD
     Route: 048
     Dates: start: 2012
  12. NEURONTIN [Concomitant]
     Active Substance: GABAPENTIN
     Indication: PAIN
     Dosage: 400 MG, 3X/DAY:TID
     Route: 048
     Dates: start: 2000
  13. TOPAMAX [Concomitant]
     Active Substance: TOPIRAMATE
     Indication: HEADACHE
     Dosage: 50 MG, 2X/DAY:BID
     Route: 065
  14. BUSPIRONE [Concomitant]
     Active Substance: BUSPIRONE HYDROCHLORIDE
     Indication: ANXIETY
     Dosage: 30 MG, 3X/DAY:TID
     Route: 065
  15. HYDROXYZINE [Concomitant]
     Active Substance: HYDROXYZINE HYDROCHLORIDE
     Indication: SLEEP DISORDER
     Dosage: 25 MG, 1X/DAY:QD (BEDTIME)
     Route: 065
  16. BACLOFEN. [Concomitant]
     Active Substance: BACLOFEN
     Indication: MUSCLE RELAXANT THERAPY
     Dosage: 20 MG, 3X/DAY:TID
     Route: 048
     Dates: start: 2000
  17. GABAPENTIN. [Concomitant]
     Active Substance: GABAPENTIN
     Indication: NERVE COMPRESSION
     Dosage: 400 MG (3 CAPSULES), 3X/DAY:TID
     Route: 065
  18. ZAFIRLUKAST. [Concomitant]
     Active Substance: ZAFIRLUKAST
     Indication: SEASONAL ALLERGY
     Dosage: 20 MG, 1X/DAY:QD
     Route: 048
     Dates: start: 2000
  19. XIIDRA [Suspect]
     Active Substance: LIFITEGRAST
     Indication: DRY EYE
     Dosage: 1 GTT, 2X/DAY:BID
     Route: 047
     Dates: start: 20170421, end: 20170421
  20. AMITRIPTYLINE [Concomitant]
     Active Substance: AMITRIPTYLINE
     Indication: BACK PAIN
  21. XYZAL [Concomitant]
     Active Substance: LEVOCETIRIZINE DIHYDROCHLORIDE
     Indication: HYPERSENSITIVITY
     Dosage: 5 MG, 1X/DAY:QD
     Route: 065
  22. VITAMIN C [Concomitant]
     Active Substance: ASCORBIC ACID
     Indication: VITAMIN SUPPLEMENTATION
     Dosage: UNK, 1X/DAY:QD
     Route: 065
  23. NUCYNTA [Concomitant]
     Active Substance: TAPENTADOL HYDROCHLORIDE
     Indication: PAIN
     Dosage: 200 MG (ER), OTHER (EVERY 12 HOURS)
     Route: 065

REACTIONS (3)
  - Instillation site pain [Recovering/Resolving]
  - Sensation of foreign body [Recovering/Resolving]
  - Fear [Recovered/Resolved]

NARRATIVE: CASE EVENT DATE: 20170421
